FAERS Safety Report 9539110 (Version 2)
Quarter: 2013Q4

REPORT INFORMATION
  Report Type: Spontaneous
  Country: US (occurrence: US)
  Receive Date: 20130920
  Receipt Date: 20131202
  Transmission Date: 20140711
  Serious: Yes (Hospitalization, Other)
  Sender: FDA-Public Use
  Company Number: US-SANOFI-AVENTIS-2013SA090481

PATIENT
  Age: 75 Year
  Sex: Male

DRUGS (2)
  1. AMARYL [Suspect]
     Indication: TYPE 2 DIABETES MELLITUS
     Route: 065
     Dates: end: 201303
  2. NOVOLOG [Concomitant]
     Route: 065

REACTIONS (5)
  - Gastric haemorrhage [Unknown]
  - Cardiac failure congestive [Unknown]
  - Joint injury [Unknown]
  - Hypoglycaemia [Unknown]
  - Urinary tract infection [Unknown]
